FAERS Safety Report 12970169 (Version 3)
Quarter: 2017Q1

REPORT INFORMATION
  Report Type: Spontaneous
  Country: FR (occurrence: FR)
  Receive Date: 20161123
  Receipt Date: 20170125
  Transmission Date: 20170428
  Serious: Yes (Hospitalization)
  Sender: FDA-Public Use
  Company Number: FR-JNJFOC-20161116781

PATIENT
  Age: 32 Year
  Sex: Male

DRUGS (7)
  1. ALPRAZOLAM. [Concomitant]
     Active Substance: ALPRAZOLAM
     Route: 065
  2. THERALENE [Concomitant]
     Active Substance: TRIMEPRAZINE
     Route: 065
  3. VENLAFAXINE [Suspect]
     Active Substance: VENLAFAXINE HYDROCHLORIDE
     Indication: DEPRESSION
     Dosage: (75 IN 3) 2 DOSE IN THE MORNING AND 1 DOSE AT NOON
     Route: 048
  4. RISPERDAL [Suspect]
     Active Substance: RISPERIDONE
     Indication: DEPRESSION
     Dosage: IN THE EVENING
     Route: 048
  5. MIRTAZAPINE. [Concomitant]
     Active Substance: MIRTAZAPINE
     Indication: DEPRESSION
     Route: 048
  6. NOCERTONE [Concomitant]
     Active Substance: OXETORONE
     Route: 065
  7. LAROXYL [Concomitant]
     Active Substance: AMITRIPTYLINE
     Route: 065

REACTIONS (6)
  - Weight decreased [Recovering/Resolving]
  - Product use issue [Unknown]
  - Diabetes mellitus [Recovering/Resolving]
  - Insulin resistance [Recovering/Resolving]
  - Diabetes insipidus [Recovered/Resolved]
  - Off label use [Unknown]

NARRATIVE: CASE EVENT DATE: 201605
